FAERS Safety Report 15239078 (Version 1)
Quarter: 2018Q3

REPORT INFORMATION
  Report Type: Spontaneous
  Country: GB (occurrence: GB)
  Receive Date: 20180803
  Receipt Date: 20180803
  Transmission Date: 20181010
  Serious: Yes (Hospitalization)
  Sender: FDA-Public Use
  Company Number: GB-SA-2018SA206727

PATIENT
  Age: 6 Year
  Sex: Male
  Weight: 18 kg

DRUGS (1)
  1. ELIGLUSTAT. [Suspect]
     Active Substance: ELIGLUSTAT
     Indication: GAUCHER^S DISEASE TYPE III
     Dosage: UNK, UNK
     Route: 065

REACTIONS (7)
  - Ascites [Recovering/Resolving]
  - Protein-losing gastroenteropathy [Recovering/Resolving]
  - Lymphadenopathy [Recovering/Resolving]
  - Diarrhoea [Recovering/Resolving]
  - Blood albumin decreased [Recovering/Resolving]
  - Waist circumference increased [Recovering/Resolving]
  - Weight gain poor [Recovering/Resolving]

NARRATIVE: CASE EVENT DATE: 20160416
